FAERS Safety Report 6695720-2 (Version None)
Quarter: 2010Q2

REPORT INFORMATION
  Report Type: 
  Country: None (occurrence: None)
  Receive Date: 20100426
  Receipt Date: 20100412
  Transmission Date: 20101027
  Serious: Yes (Other)
  Sender: FDA-Public Use
  Company Number: IT-RANBAXY-2010RR-33199

PATIENT
  Age: 32 Year
  Sex: Male

DRUGS (1)
  1. ZOLPIDEM [Suspect]
     Dosage: 40 MG, UNK
     Route: 048

REACTIONS (3)
  - HALLUCINATION [None]
  - INTENTIONAL SELF-INJURY [None]
  - OVERDOSE [None]
